FAERS Safety Report 12290842 (Version 3)
Quarter: 2016Q2

REPORT INFORMATION
  Report Type: Report from Study
  Country: US (occurrence: US)
  Receive Date: 20160421
  Receipt Date: 20160615
  Transmission Date: 20160815
  Serious: Yes (Hospitalization)
  Sender: FDA-Public Use
  Company Number: US-ALKERMES, INC-16US000306

PATIENT
  Age: 59 Year
  Sex: Male
  Weight: 80.5 kg

DRUGS (7)
  1. ARIPIPRAZOLE VS PLACEBO [Suspect]
     Active Substance: ARIPIPRAZOLE
     Indication: SCHIZOPHRENIA
     Dosage: 15MG OR 30MG
     Route: 048
     Dates: start: 20150107, end: 20160123
  2. BLINDED ALKS 9072N [Suspect]
     Active Substance: ARIPIPRAZOLE LAUROXIL
     Dosage: 662 MG, SINGLE
     Route: 030
     Dates: start: 20160107, end: 20160107
  3. BLINDED ARIPIPRAZOLE LAUROXIL [Suspect]
     Active Substance: ARIPIPRAZOLE LAUROXIL
     Dosage: 662 MG, SINGLE
     Route: 030
     Dates: start: 20160107, end: 20160107
  4. ARIPIPRAZOLE LAUROXIL [Suspect]
     Active Substance: ARIPIPRAZOLE LAUROXIL
     Indication: SCHIZOPHRENIA
     Dosage: 441MG OR 882MG, ONCE
     Route: 030
     Dates: start: 20160107, end: 20160107
  5. SAPHRIS [Concomitant]
     Active Substance: ASENAPINE MALEATE
     Indication: SCHIZOPHRENIA
     Dosage: 5 MG, QD
     Route: 048
     Dates: start: 2013, end: 20160122
  6. BLINDED ARIPIPRAZOLE [Suspect]
     Active Substance: ARIPIPRAZOLE
     Dosage: 662 MG, SINGLE
     Route: 030
     Dates: start: 20160107, end: 20160107
  7. BLINDED ALKS 9072N PLACEBO [Suspect]
     Active Substance: ARIPIPRAZOLE LAUROXIL
     Dosage: 662 MG, SINGLE
     Route: 030
     Dates: start: 20160107, end: 20160107

REACTIONS (1)
  - Status epilepticus [Recovered/Resolved with Sequelae]

NARRATIVE: CASE EVENT DATE: 20160123
